FAERS Safety Report 16568835 (Version 1)
Quarter: 2019Q3

REPORT INFORMATION
  Report Type: Spontaneous
  Country: DE (occurrence: DE)
  Receive Date: 20190713
  Receipt Date: 20190713
  Transmission Date: 20191004
  Serious: Yes (Hospitalization)
  Sender: FDA-Public Use
  Company Number: DE-TEVA-2019-DE-1075816

PATIENT
  Age: 69 Year
  Sex: Male

DRUGS (5)
  1. ETOPOSID [Suspect]
     Active Substance: ETOPOSIDE
     Dosage: NK LAST GIFT 23.03.2016
  2. LEVOTHYROXIN [Concomitant]
     Active Substance: LEVOTHYROXINE
     Dosage: 50 MICROGRAM , 1-0-0-0
     Route: 065
  3. RAMIPRIL. [Concomitant]
     Active Substance: RAMIPRIL
     Dosage: 2.5 MG, 1-0-0-1
     Route: 065
  4. CISPLATIN. [Suspect]
     Active Substance: CISPLATIN
     Dosage: NK LAST GIFT 23.03.2016
     Route: 065
  5. ACETYLSALICYLSAEURE [Concomitant]
     Active Substance: ASPIRIN
     Dosage: 100 MG, 1-0-0-0
     Route: 065

REACTIONS (7)
  - Pancytopenia [Unknown]
  - General physical health deterioration [Unknown]
  - Chills [Unknown]
  - Leukopenia [Unknown]
  - Cough [Unknown]
  - Pyrexia [Unknown]
  - Decreased appetite [Unknown]
